FAERS Safety Report 21519526 (Version 1)
Quarter: 2022Q4

REPORT INFORMATION
  Report Type: Spontaneous
  Country: US (occurrence: None)
  Receive Date: 20221027
  Receipt Date: 20221027
  Transmission Date: 20230113
  Serious: Yes (Hospitalization)
  Sender: FDA-Public Use
  Company Number: None

PATIENT
  Age: 73 Year
  Sex: Male
  Weight: 128.82 kg

DRUGS (1)
  1. PYRIDOSTIGMINE BROMIDE [Suspect]
     Active Substance: PYRIDOSTIGMINE BROMIDE
     Indication: Eyelid ptosis
     Dosage: FREQUENCY : 3 TIMES A DAY;?
     Route: 048
     Dates: start: 20220708, end: 20221016

REACTIONS (6)
  - Bradycardia [None]
  - Diplopia [None]
  - Dysphagia [None]
  - Myasthenia gravis [None]
  - Hypothyroidism [None]
  - Thyroiditis [None]

NARRATIVE: CASE EVENT DATE: 20220721
